FAERS Safety Report 17423556 (Version 1)
Quarter: 2020Q1

REPORT INFORMATION
  Report Type: Spontaneous
  Country: BR (occurrence: BR)
  Receive Date: 20200217
  Receipt Date: 20200217
  Transmission Date: 20200409
  Serious: Yes (Other)
  Sender: FDA-Public Use
  Company Number: BR-009507513-2002BRA004818

PATIENT
  Sex: Female

DRUGS (2)
  1. RIVOTRIL [Concomitant]
     Active Substance: CLONAZEPAM
     Indication: SLEEP DISORDER
     Dosage: 0.5 MILLIGRAM (1 TABLET)
     Route: 048
     Dates: start: 1990
  2. DESALEX [Suspect]
     Active Substance: DESLORATADINE
     Indication: DUST ALLERGY
     Dosage: 5 MILLIGRAM (1 TABLET) PER DAY
     Route: 048
     Dates: start: 202001

REACTIONS (3)
  - Dizziness [Not Recovered/Not Resolved]
  - Mental impairment [Not Recovered/Not Resolved]
  - Product use in unapproved indication [Unknown]

NARRATIVE: CASE EVENT DATE: 202001
